FAERS Safety Report 10051742 (Version 1)
Quarter: 2014Q2

REPORT INFORMATION
  Report Type: Spontaneous
  Country: BE (occurrence: BE)
  Receive Date: 20140401
  Receipt Date: 20140401
  Transmission Date: 20141212
  Serious: Yes (Hospitalization, Other)
  Sender: FDA-Public Use
  Company Number: BE-009507513-1403BEL012981

PATIENT
  Age: 63 Year
  Sex: Male

DRUGS (1)
  1. ZOCOR [Suspect]
     Dosage: 2X40 MG/EVENING/NIGHT
     Route: 048
     Dates: end: 2014

REACTIONS (7)
  - Adverse event [Unknown]
  - Paralysis [Unknown]
  - Pain [Unknown]
  - Paraesthesia [Unknown]
  - Musculoskeletal pain [Unknown]
  - Back pain [Unknown]
  - Pain in extremity [Unknown]
